FAERS Safety Report 24674722 (Version 2)
Quarter: 2025Q4

REPORT INFORMATION
  Report Type: Spontaneous
  Country: EU (occurrence: EU)
  Receive Date: 20241128
  Receipt Date: 20251128
  Transmission Date: 20260117
  Serious: Yes (Other)
  Sender: TEVA
  Company Number: None

PATIENT
  Age: 74 Year
  Sex: Male
  Weight: 78 kg

DRUGS (3)
  1. CANDESARTAN [Suspect]
     Active Substance: CANDESARTAN
     Indication: Hypertension
     Dosage: 1 PIECE TWICE A DAY, BRAND NAME NOT SPECIFIED, LOT LA3946
     Route: 048
     Dates: start: 20230105
  2. ROSUVASTATIN [Suspect]
     Active Substance: ROSUVASTATIN
     Indication: Low density lipoprotein increased
     Dosage: 1 PIECE PER DAY, BRAND NAME NOT SPECIFIED
     Route: 048
     Dates: start: 20230104
  3. ISOPTIN SR [Suspect]
     Active Substance: VERAPAMIL HYDROCHLORIDE
     Indication: Myocardial infarction
     Dosage: 1 PIECE TWICE A DAY, TABLET MGA, LOT 63836PC
     Route: 048
     Dates: start: 20171205

REACTIONS (5)
  - Ileus [Not Recovered/Not Resolved]
  - Constipation [Not Recovered/Not Resolved]
  - Abdominal symptom [Not Recovered/Not Resolved]
  - Nausea [Not Recovered/Not Resolved]
  - Malaise [Not Recovered/Not Resolved]
